FAERS Safety Report 4289574-1 (Version None)
Quarter: 2004Q1

REPORT INFORMATION
  Report Type: 
  Country: None (occurrence: None)
  Receive Date: 20040127
  Receipt Date: 20030204
  Transmission Date: 20041129
  Serious: Yes (Hospitalization)
  Sender: FDA-Public Use
  Company Number: TAP2003Q00292

PATIENT
  Sex: Female

DRUGS (1)
  1. PREVPAC [Suspect]
     Indication: HELICOBACTER INFECTION
     Dosage: ORAL
     Route: 048

REACTIONS (1)
  - HYPOGLYCAEMIA [None]
